FAERS Safety Report 26028513 (Version 2)
Quarter: 2025Q4

REPORT INFORMATION
  Report Type: Spontaneous
  Country: US (occurrence: US)
  Receive Date: 20251111
  Receipt Date: 20251204
  Transmission Date: 20260117
  Serious: Yes (Hospitalization)
  Sender: TEVA
  Company Number: US-TEVA-VS-3389257

PATIENT
  Age: 30 Year
  Sex: Male

DRUGS (1)
  1. METHYLPREDNISOLONE [Suspect]
     Active Substance: METHYLPREDNISOLONE
     Indication: Dermatitis allergic
     Dosage: HIGH DOSE
     Route: 042

REACTIONS (7)
  - Hypokalaemia [Recovered/Resolved]
  - Hyperthyroidism [Recovered/Resolved]
  - Atrial fibrillation [Recovered/Resolved]
  - Paralysis [Recovered/Resolved]
  - Muscular weakness [Recovered/Resolved]
  - Tachycardia [Recovered/Resolved]
  - Hyporeflexia [Recovered/Resolved]
